FAERS Safety Report 7784595-6 (Version None)
Quarter: 2011Q3

REPORT INFORMATION
  Report Type: 
  Country: None (occurrence: None)
  Receive Date: 20110926
  Receipt Date: 20110909
  Transmission Date: 20111222
  Serious: Yes (Death, Other)
  Sender: FDA-Public Use
  Company Number: GER/UKI/09/0005813

PATIENT
  Age: 22 Year
  Sex: Female

DRUGS (4)
  1. LAMOTRIGINE [Suspect]
     Indication: EPILEPSY
     Dosage: 25 MG, 2 IN 1 D ; 100 MG, 2 IN 1 D
  2. VALPROATE SODIUM [Concomitant]
  3. CARBAMAZEPINE [Concomitant]
  4. VIGABATRIN (VIGABATRIN) [Concomitant]

REACTIONS (6)
  - RASH MACULO-PAPULAR [None]
  - PULMONARY EMBOLISM [None]
  - PYREXIA [None]
  - ENCEPHALOPATHY [None]
  - BRAIN OEDEMA [None]
  - ACUTE HEPATIC FAILURE [None]
